FAERS Safety Report 9031614 (Version 1)
Quarter: 2013Q1

REPORT INFORMATION
  Report Type: Spontaneous
  Country: VE (occurrence: VE)
  Receive Date: 20130124
  Receipt Date: 20130124
  Transmission Date: 20140127
  Serious: Yes (Hospitalization)
  Sender: FDA-Public Use
  Company Number: VE-ROCHE-1183386

PATIENT
  Sex: Female
  Weight: 82 kg

DRUGS (1)
  1. XOLAIR [Suspect]
     Indication: ASTHMA
     Route: 065
     Dates: start: 201103, end: 201109

REACTIONS (3)
  - Pneumonia [Recovering/Resolving]
  - Immunoglobulins increased [Recovering/Resolving]
  - Asthma [Recovering/Resolving]
